FAERS Safety Report 8393264-3 (Version None)
Quarter: 2012Q2

REPORT INFORMATION
  Report Type: 
  Country: None (occurrence: None)
  Receive Date: 20120529
  Receipt Date: 20120523
  Transmission Date: 20120825
  Serious: Yes (Other)
  Sender: FDA-Public Use
  Company Number: US-PFIZER INC-2012125560

PATIENT
  Sex: Female
  Weight: 90.703 kg

DRUGS (1)
  1. ADVIL [Suspect]
     Indication: HEADACHE
     Dosage: 200MG OR 220MG

REACTIONS (4)
  - DRUG RESISTANCE [None]
  - OVERDOSE [None]
  - PAIN [None]
  - APHAGIA [None]
